FAERS Safety Report 8630036 (Version 3)
Quarter: 2013Q4

REPORT INFORMATION
  Report Type: Spontaneous
  Country: US (occurrence: US)
  Receive Date: 20120622
  Receipt Date: 20131129
  Transmission Date: 20140711
  Serious: Yes (Hospitalization, Other)
  Sender: FDA-Public Use
  Company Number: US-ASTRAZENECA-2012SE36402

PATIENT
  Age: 16196 Day
  Sex: Male
  Weight: 111.1 kg

DRUGS (19)
  1. NEXIUM [Suspect]
     Indication: GASTROOESOPHAGEAL REFLUX DISEASE
     Route: 048
     Dates: start: 20010831, end: 20121227
  2. NEXIUM [Suspect]
     Indication: GASTROOESOPHAGEAL REFLUX DISEASE
     Route: 048
     Dates: start: 20010831, end: 20121227
  3. NEXIUM [Suspect]
     Indication: GASTROOESOPHAGEAL REFLUX DISEASE
     Dosage: 1 THEN LATER INCREASED TO 2
     Route: 048
  4. NEXIUM [Suspect]
     Indication: GASTROOESOPHAGEAL REFLUX DISEASE
     Dosage: 1 THEN LATER INCREASED TO 2
     Route: 048
  5. NEXIUM [Suspect]
     Indication: GASTROOESOPHAGEAL REFLUX DISEASE
     Route: 048
     Dates: start: 20010831
  6. NEXIUM [Suspect]
     Indication: GASTROOESOPHAGEAL REFLUX DISEASE
     Route: 048
     Dates: start: 20010831
  7. PROTONIX [Concomitant]
     Indication: GASTROOESOPHAGEAL REFLUX DISEASE
     Dates: start: 20120620
  8. RANITIDINE/ZANTAC [Concomitant]
     Dates: start: 20050201
  9. FAMOTIDINE/PEPCID [Concomitant]
     Dates: start: 20060929
  10. FAMOTIDINE/PEPCID [Concomitant]
  11. SERTRALINE [Concomitant]
     Dosage: ONE AND 1/2 TABLETS BY MOUTH DAILY
     Dates: start: 20130401
  12. CLARINEX [Concomitant]
     Dates: start: 20130401
  13. METOPROLOL TARTRATE [Concomitant]
     Dates: start: 20130401
  14. TOPAMAX [Concomitant]
  15. ATORVASTATIN [Concomitant]
     Dates: start: 20130401
  16. ALPRAZOLAM [Concomitant]
  17. ZYRTEC [Concomitant]
  18. PREDNISONE [Concomitant]
     Indication: ASTHMA
  19. ATENOLOL [Concomitant]

REACTIONS (17)
  - Hernia [Unknown]
  - Thrombosis [Unknown]
  - Osteonecrosis [Unknown]
  - Pulmonary embolism [Unknown]
  - Osteoporosis [Unknown]
  - Bone density decreased [Unknown]
  - Upper limb fracture [Unknown]
  - Cataract [Unknown]
  - Arthritis [Unknown]
  - Chronic obstructive pulmonary disease [Unknown]
  - Diabetes mellitus [Unknown]
  - Vitamin D deficiency [Unknown]
  - Osteoarthritis [Unknown]
  - Fibromyalgia [Unknown]
  - Intervertebral disc degeneration [Unknown]
  - Arthralgia [Unknown]
  - Depression [Unknown]
